FAERS Safety Report 6417501-7 (Version None)
Quarter: 2009Q4

REPORT INFORMATION
  Report Type: 
  Country: None (occurrence: None)
  Receive Date: 20091026
  Receipt Date: 20091013
  Transmission Date: 20100525
  Serious: Yes (Other)
  Sender: FDA-Public Use
  Company Number: ADR38102009

PATIENT
  Age: 68 Year
  Sex: Male

DRUGS (5)
  1. SIMVASTATIN [Suspect]
     Dosage: 40MG, ORAL USE
     Route: 048
     Dates: start: 20080311, end: 20080320
  2. ASPIRIN [Concomitant]
  3. BISOPROLOL [Concomitant]
  4. CLOPIDOGREL [Concomitant]
  5. RAMIPRIL [Concomitant]

REACTIONS (1)
  - ANAPHYLACTIC REACTION [None]
